FAERS Safety Report 19247254 (Version 1)
Quarter: 2021Q2

REPORT INFORMATION
  Report Type: Spontaneous
  Country: DE (occurrence: DE)
  Receive Date: 20210512
  Receipt Date: 20210512
  Transmission Date: 20210717
  Serious: Yes (Life-Threatening, Hospitalization)
  Sender: FDA-Public Use
  Company Number: DE-TEVA-2021-DE-1909056

PATIENT
  Age: 58 Year
  Sex: Female

DRUGS (10)
  1. PREGABALIN. [Concomitant]
     Active Substance: PREGABALIN
     Dosage: 4 DOSAGE FORMS DAILY; 50 MG, 2?0?2?0
  2. OXALIPLATIN. [Suspect]
     Active Substance: OXALIPLATIN
     Dosage: LAST ON 26012021
     Dates: end: 20210126
  3. KALIUM [Concomitant]
     Active Substance: POTASSIUM CHLORIDE
     Dosage: 4 DOSAGE FORMS DAILY; 2?2?0?0
  4. FOLINSAEURE [Suspect]
     Active Substance: LEUCOVORIN
     Dosage: LAST ON 26012021
     Dates: end: 20210126
  5. TORASEMID [Suspect]
     Active Substance: TORSEMIDE
     Dosage: 10 MILLIGRAM DAILY; 1?0?0?0
  6. PANTOPRAZOL [Concomitant]
     Active Substance: PANTOPRAZOLE SODIUM
     Dosage: 40 MILLIGRAM DAILY; 1?0?0?0
  7. METFORMIN [Concomitant]
     Active Substance: METFORMIN HYDROCHLORIDE
     Dosage: 2000 MILLIGRAM DAILY; 1?0?1?0
  8. FLUOROURACIL. [Suspect]
     Active Substance: FLUOROURACIL
     Dosage: LAST ON 26012021
     Dates: end: 20210126
  9. AMINEURIN [Concomitant]
     Active Substance: AMITRIPTYLINE HYDROCHLORIDE
     Dosage: 25 MILLIGRAM DAILY; 0?0?1?0
  10. LEVOTHYROXINE SODIUM. [Concomitant]
     Active Substance: LEVOTHYROXINE SODIUM
     Dosage: 125 MICROGRAM DAILY; 1?0?0?0

REACTIONS (5)
  - Electrolyte imbalance [Unknown]
  - Nausea [Unknown]
  - Dehydration [Unknown]
  - Abdominal pain [Unknown]
  - Acute kidney injury [Unknown]
